FAERS Safety Report 9016515 (Version 1)
Quarter: 2013Q1

REPORT INFORMATION
  Report Type: Spontaneous
  Country: CO (occurrence: CO)
  Receive Date: 20130116
  Receipt Date: 20130116
  Transmission Date: 20140127
  Serious: Yes (Other)
  Sender: FDA-Public Use
  Company Number: CO-AMGEN-COLSP2012071996

PATIENT
  Age: 53 Year
  Sex: Female

DRUGS (14)
  1. ENBREL [Suspect]
     Indication: PSORIATIC ARTHROPATHY
     Dosage: 50 MG, WEEKLY
     Route: 058
     Dates: start: 2010
  2. ENBREL [Suspect]
     Dosage: 50 MG, 2 TIMES/WK
     Route: 058
     Dates: start: 201205
  3. ENBREL [Suspect]
     Dosage: 50 MG, 2X/WEEK
     Route: 058
     Dates: start: 2011
  4. ENALAPRIL [Concomitant]
     Indication: HYPERTENSION
     Dosage: UNK
     Route: 048
     Dates: start: 2007, end: 2009
  5. OMEPRAZOL                          /00661201/ [Concomitant]
     Dosage: UNK
     Route: 048
     Dates: start: 2008
  6. METHOTREXATE [Concomitant]
     Dosage: UNK
     Dates: end: 20121029
  7. TRAZODONE [Concomitant]
     Indication: INSOMNIA
     Dosage: 50 MG, UNK
  8. TRAZODONE [Concomitant]
     Dosage: 50 MG, 2X/DAY AT NIGHT
     Route: 048
     Dates: start: 2011
  9. FOLIC ACID [Concomitant]
     Indication: PROPHYLAXIS
     Dosage: UNK
  10. FOLIC ACID [Concomitant]
     Dosage: UNK
     Route: 048
     Dates: start: 2012
  11. ACETAMINOPHEN [Concomitant]
     Dosage: 500 MG, UNK
  12. ARAVA [Concomitant]
     Dosage: UNK
  13. ACTONEL [Concomitant]
     Dosage: 150 MG, UNK
  14. VITAMIN D /00107901/ [Concomitant]
     Dosage: UNK
     Route: 065
     Dates: start: 2007

REACTIONS (6)
  - Ovarian disorder [Unknown]
  - Uterine disorder [Unknown]
  - Insomnia [Not Recovered/Not Resolved]
  - Injection site pain [Not Recovered/Not Resolved]
  - Injection site swelling [Not Recovered/Not Resolved]
  - Injection site erythema [Not Recovered/Not Resolved]
